FAERS Safety Report 7496985-X (Version None)
Quarter: 2011Q2

REPORT INFORMATION
  Report Type: 
  Country: None (occurrence: None)
  Receive Date: 20110516
  Receipt Date: 20110503
  Transmission Date: 20111010
  Serious: Yes (Hospitalization)
  Sender: FDA-Public Use
  Company Number: 2011MA004904

PATIENT
  Age: 74 Year
  Sex: Female

DRUGS (1)
  1. CARBIDOPA AND LEVODOPA [Suspect]
     Indication: PARKINSON'S DISEASE
     Dosage: 1200 MG; OD

REACTIONS (8)
  - NEUROTOXICITY [None]
  - ENCEPHALOPATHY [None]
  - DISORIENTATION [None]
  - FALL [None]
  - AXONAL NEUROPATHY [None]
  - DEPRESSED LEVEL OF CONSCIOUSNESS [None]
  - MYOCLONUS [None]
  - MUSCULAR WEAKNESS [None]
